FAERS Safety Report 4598025-9 (Version None)
Quarter: 2005Q1

REPORT INFORMATION
  Report Type: 
  Country: None (occurrence: None)
  Receive Date: 20050204
  Receipt Date: 20040102
  Transmission Date: 20050727
  Serious: Yes (Other)
  Sender: FDA-Public Use
  Company Number: PHEH2003US02727

PATIENT
  Age: 62 Year
  Sex: Female
  Weight: 102.5 kg

DRUGS (7)
  1. CLOZARIL [Suspect]
     Indication: SCHIZOPHRENIA, PARANOID TYPE
     Dosage: 500 MG, QD, ORAL
     Route: 048
     Dates: start: 19990301
  2. RISPERDAL            /SWE/(RISPERIDONE) [Concomitant]
  3. VITAMIN E [Concomitant]
  4. ZYPREXA [Concomitant]
  5. ZOLOFT [Concomitant]
  6. VIOXX                    /USA/(ROFECOXIB) [Concomitant]
  7. DARVOCET-N 100 [Concomitant]

REACTIONS (2)
  - DYSKINESIA [None]
  - TARDIVE DYSKINESIA [None]
